FAERS Safety Report 6401600-X (Version None)
Quarter: 2009Q4

REPORT INFORMATION
  Report Type: 
  Country: None (occurrence: None)
  Receive Date: 20091009
  Receipt Date: 20090924
  Transmission Date: 20100525
  Serious: Yes (Hospitalization)
  Sender: FDA-Public Use
  Company Number: 2009000235

PATIENT
  Age: 45 Year
  Sex: Female
  Weight: 61.3263 kg

DRUGS (19)
  1. ERLOTINIB HYDROCHLORIDE [Suspect]
     Indication: NON-SMALL CELL LUNG CANCER
     Dosage: (150 MG, QD), ORAL; (100 MG, QD), ORAL
     Route: 048
     Dates: start: 20081201, end: 20081228
  2. ERLOTINIB HYDROCHLORIDE [Suspect]
     Indication: NON-SMALL CELL LUNG CANCER
     Dosage: (150 MG, QD), ORAL; (100 MG, QD), ORAL
     Route: 048
     Dates: start: 20081230, end: 20090107
  3. ERLOTINIB HYDROCHLORIDE [Suspect]
     Indication: NON-SMALL CELL LUNG CANCER
     Dosage: (150 MG, QD), ORAL; (100 MG, QD), ORAL
     Route: 048
     Dates: start: 20090108
  4. SUNITINIB/ PLACEBO [Suspect]
     Indication: NON-SMALL CELL LUNG CANCER
     Dosage: (37.5 MG, QD); (25 MG, QD)
     Dates: start: 20081201, end: 20081228
  5. SUNITINIB/ PLACEBO [Suspect]
     Indication: NON-SMALL CELL LUNG CANCER
     Dosage: (37.5 MG, QD); (25 MG, QD)
     Dates: start: 20081230, end: 20090107
  6. SUNITINIB/ PLACEBO [Suspect]
     Indication: NON-SMALL CELL LUNG CANCER
     Dosage: (37.5 MG, QD); (25 MG, QD)
     Dates: start: 20090108
  7. HUMULIN M (INSULIN HUMAN) [Concomitant]
  8. HUMULIN R [Concomitant]
  9. PERINDOPRIL ERBUMINE [Concomitant]
  10. CETIRIZINE HCL [Concomitant]
  11. CRESTOR [Concomitant]
  12. ASPIRIN [Concomitant]
  13. PAROXETINE HCL [Concomitant]
  14. PRILOSEC [Concomitant]
  15. METOPROLOL (METOPROLOL) [Concomitant]
  16. BETAHISTINE (BETAHISTINE) [Concomitant]
  17. MAGNESIUM GLUCONATE (MAGNESIUM GLUCONATE) [Concomitant]
  18. SODIUM CHLORIDE [Concomitant]
  19. POTASSIUM CHLORIDE [Concomitant]

REACTIONS (14)
  - ASTHMA [None]
  - DIZZINESS [None]
  - HYPOCALCAEMIA [None]
  - HYPOKALAEMIA [None]
  - HYPOMAGNESAEMIA [None]
  - INFLUENZA LIKE ILLNESS [None]
  - LABYRINTHITIS [None]
  - MALAISE [None]
  - MULTIPLE ALLERGIES [None]
  - NAUSEA [None]
  - PARAESTHESIA [None]
  - TELANGIECTASIA [None]
  - VISION BLURRED [None]
  - VOMITING [None]
